FAERS Safety Report 24685538 (Version 2)
Quarter: 2025Q1

REPORT INFORMATION
  Report Type: Spontaneous
  Country: US (occurrence: US)
  Receive Date: 20241202
  Receipt Date: 20250304
  Transmission Date: 20250408
  Serious: No
  Sender: BRACCO
  Company Number: US-BRACCO-2024US06717

PATIENT
  Sex: Male

DRUGS (1)
  1. POSLUMA [Suspect]
     Active Substance: FLOTUFOLASTAT F-18
     Indication: Positron emission tomogram
     Route: 042
     Dates: start: 20241017, end: 20241017

REACTIONS (2)
  - Drug ineffective [Unknown]
  - Positron emission tomogram abnormal [Unknown]

NARRATIVE: CASE EVENT DATE: 20241017
